FAERS Safety Report 20449610 (Version 2)
Quarter: 2022Q3

REPORT INFORMATION
  Report Type: Other
  Country: US (occurrence: None)
  Receive Date: 20220209
  Receipt Date: 20220815
  Transmission Date: 20221027
  Serious: No
  Sender: FDA-Public Use
  Company Number: US-ROCHE-3015461

PATIENT
  Age: 69 Year
  Sex: Female
  Weight: 74.910 kg

DRUGS (18)
  1. OCREVUS [Suspect]
     Active Substance: OCRELIZUMAB
     Indication: Progressive multiple sclerosis
     Dosage: LAST DOT: 30/JUL/2021
     Route: 042
  2. OCREVUS [Suspect]
     Active Substance: OCRELIZUMAB
     Indication: Relapsing multiple sclerosis
  3. OCREVUS [Suspect]
     Active Substance: OCRELIZUMAB
     Indication: Multiple sclerosis
  4. ARMODAFINIL [Concomitant]
     Active Substance: ARMODAFINIL
  5. BACLOFEN [Concomitant]
     Active Substance: BACLOFEN
  6. LEVOTHYROXINE [Concomitant]
     Active Substance: LEVOTHYROXINE
  7. AMITIZA [Concomitant]
     Active Substance: LUBIPROSTONE
  8. OZEMPIC [Concomitant]
     Active Substance: SEMAGLUTIDE
  9. GABAPENTIN [Concomitant]
     Active Substance: GABAPENTIN
  10. METFORMIN [Concomitant]
     Active Substance: METFORMIN HYDROCHLORIDE
     Route: 048
  11. VITAMIN D3 [Concomitant]
     Active Substance: CHOLECALCIFEROL
  12. PEPCID [Concomitant]
     Active Substance: FAMOTIDINE
  13. AMITRIPTYLINE [Concomitant]
     Active Substance: AMITRIPTYLINE
  14. LORATADINE [Concomitant]
     Active Substance: LORATADINE
  15. MELATONIN [Concomitant]
     Active Substance: MELATONIN
  16. KETOROLAC [Concomitant]
     Active Substance: KETOROLAC TROMETHAMINE
  17. MYCOSTATIN [Concomitant]
     Active Substance: NYSTATIN
  18. PREDNISOLONE ACETATE [Concomitant]
     Active Substance: PREDNISOLONE ACETATE

REACTIONS (3)
  - Fungal infection [Not Recovered/Not Resolved]
  - Skin exfoliation [Unknown]
  - Fall [Unknown]

NARRATIVE: CASE EVENT DATE: 20211101
